FAERS Safety Report 13714018 (Version 1)
Quarter: 2017Q3

REPORT INFORMATION
  Report Type: Spontaneous
  Country: FR (occurrence: FR)
  Receive Date: 20170704
  Receipt Date: 20170704
  Transmission Date: 20171127
  Serious: Yes (Hospitalization)
  Sender: FDA-Public Use
  Company Number: FR-AUROBINDO-AUR-APL-2017-36302

PATIENT
  Age: 82 Year
  Sex: Female

DRUGS (13)
  1. ESCITALOPRAM ARROW [Suspect]
     Active Substance: ESCITALOPRAM OXALATE
     Indication: DEPRESSION
     Dosage: 5 MG, ONCE A DAY
     Route: 048
     Dates: end: 20170527
  2. JANUVIA [Suspect]
     Active Substance: SITAGLIPTIN PHOSPHATE
     Indication: DIABETES MELLITUS
     Dosage: 100 MG, ONCE A DAY
     Route: 048
     Dates: end: 20170524
  3. DOLIPRANE [Suspect]
     Active Substance: ACETAMINOPHEN
     Indication: PAIN
     Dosage: 3 G, DAILY
     Route: 048
     Dates: end: 20170529
  4. LOXAPAC                            /00401801/ [Suspect]
     Active Substance: LOXAPINE SUCCINATE
     Indication: ACUTE PSYCHOSIS
     Dosage: 5 MG IF NECESSARY
     Route: 048
     Dates: start: 20170524, end: 20170529
  5. METFORMIN [Suspect]
     Active Substance: METFORMIN HYDROCHLORIDE
     Indication: DIABETES MELLITUS
     Dosage: 1.5 G, ONCE A DAY
     Route: 048
     Dates: end: 20170529
  6. MEMANTINE ARROW [Suspect]
     Active Substance: MEMANTINE
     Indication: DEMENTIA ALZHEIMER^S TYPE
     Dosage: 20 MG, ONCE A DAY
     Route: 048
     Dates: end: 20170529
  7. MIANSERIN ARROW [Suspect]
     Active Substance: MIANSERIN
     Indication: DEPRESSIVE SYMPTOM
     Dosage: 10 MG, DAILY
     Route: 048
     Dates: start: 20170524, end: 20170529
  8. CONTRAMAL [Suspect]
     Active Substance: TRAMADOL HYDROCHLORIDE
     Indication: PAIN
     Dosage: 37.5 MG, ONCE A DAY
     Route: 048
     Dates: start: 20170524, end: 20170529
  9. INEXIUM                            /01479302/ [Suspect]
     Active Substance: ESOMEPRAZOLE MAGNESIUM
     Indication: PRODUCT USED FOR UNKNOWN INDICATION
     Dosage: 20 MG, DAILY
     Route: 048
     Dates: end: 20170529
  10. LANTUS [Suspect]
     Active Substance: INSULIN GLARGINE
     Indication: DIABETES MELLITUS
     Dosage: 14 IU, DAILY
     Route: 058
  11. LYSANXIA [Suspect]
     Active Substance: PRAZEPAM
     Indication: ANXIETY
     Dosage: 15 MG, ONCE A DAY
     Route: 048
     Dates: start: 20170524, end: 20170529
  12. GALVUS [Suspect]
     Active Substance: VILDAGLIPTIN
     Indication: DIABETES MELLITUS
     Dosage: 50 MG, ONCE A DAY
     Route: 048
     Dates: start: 20170524, end: 20170529
  13. NOVORAPID [Suspect]
     Active Substance: INSULIN ASPART
     Indication: DIABETES MELLITUS
     Dosage: ACCORDING TO GLYCEMIA
     Route: 058

REACTIONS (3)
  - Acute kidney injury [Recovered/Resolved]
  - Hepatitis [Recovered/Resolved]
  - Encephalopathy [Not Recovered/Not Resolved]

NARRATIVE: CASE EVENT DATE: 20170530
